FAERS Safety Report 6980500-0 (Version None)
Quarter: 2010Q3

REPORT INFORMATION
  Report Type: 
  Country: None (occurrence: None)
  Receive Date: 20100914
  Receipt Date: 20100901
  Transmission Date: 20110219
  Serious: Yes (Hospitalization)
  Sender: FDA-Public Use
  Company Number: PHFR2010GB02264

PATIENT
  Sex: Male

DRUGS (2)
  1. CLOZARIL [Suspect]
     Indication: SCHIZOPHRENIA
     Dosage: 300 MG, QD
     Route: 048
     Dates: start: 20070223
  2. CLOZARIL [Suspect]
     Dosage: 100 MG MANE, 200 MG NOCTE
     Route: 048
     Dates: start: 20100819

REACTIONS (2)
  - ABDOMINAL PAIN [None]
  - DRUG DOSE OMISSION [None]
